FAERS Safety Report 8789528 (Version 1)
Quarter: 2012Q4

REPORT INFORMATION
  Report Type: Spontaneous
  Country: ES (occurrence: None)
  Receive Date: 20120905
  Receipt Date: 20120905
  Transmission Date: 20130627
  Serious: Yes (Death)
  Sender: FDA-Public Use
  Company Number: FK201202538

PATIENT
  Age: 68 Year
  Sex: Male

DRUGS (5)
  1. DOXORUBICIN [Suspect]
  2. CYCLOPHOSPHAMIDE [Suspect]
  3. RITUXIMAB [Suspect]
  4. VINCRISTINE [Suspect]
  5. PREDNISONE [Suspect]

REACTIONS (5)
  - Hepatitis B [None]
  - Hepatitis [None]
  - Gastritis [None]
  - Splenomegaly [None]
  - Bicytopenia [None]
